FAERS Safety Report 25424711 (Version 1)
Quarter: 2025Q2

REPORT INFORMATION
  Report Type: Spontaneous
  Country: ES (occurrence: ES)
  Receive Date: 20250611
  Receipt Date: 20250611
  Transmission Date: 20250717
  Serious: Yes (Hospitalization)
  Sender: SANOFI AVENTIS
  Company Number: ES-BIOVITRUM-2025-ES-008039

PATIENT
  Age: 51 Year
  Sex: Male

DRUGS (4)
  1. EFANESOCTOCOG ALFA [Suspect]
     Active Substance: EFANESOCTOCOG ALFA
     Indication: Factor VIII deficiency
     Dosage: 4000 IU, QW (STRENGTH: 250IU, 500IU, 750IU, 1000IU, 2000IU, 3000IU AND 4000IU)
     Route: 065
     Dates: start: 20250508, end: 2025
  2. EFANESOCTOCOG ALFA [Suspect]
     Active Substance: EFANESOCTOCOG ALFA
     Dosage: 4000 IU, QW (STRENGTH: 250IU, 500IU, 750IU, 1000IU, 2000IU, 3000IU AND 4000IU)
     Route: 065
     Dates: start: 20250519, end: 2025
  3. EFANESOCTOCOG ALFA [Suspect]
     Active Substance: EFANESOCTOCOG ALFA
     Dosage: 4000 IU, QW (STRENGTH: 250IU, 500IU, 750IU, 1000IU, 2000IU, 3000IU AND 4000IU)
     Route: 065
     Dates: start: 20250521, end: 2025
  4. EFANESOCTOCOG ALFA [Suspect]
     Active Substance: EFANESOCTOCOG ALFA
     Route: 065

REACTIONS (4)
  - Haemorrhage [Unknown]
  - Spontaneous haematoma [Unknown]
  - Condition aggravated [Unknown]
  - Abdominal pain [Unknown]

NARRATIVE: CASE EVENT DATE: 20250501
